FAERS Safety Report 5846827-0 (Version None)
Quarter: 2008Q3

REPORT INFORMATION
  Report Type: 
  Country: None (occurrence: None)
  Receive Date: 20080815
  Receipt Date: 20080806
  Transmission Date: 20090109
  Serious: Yes (Disabling, Other)
  Sender: FDA-Public Use
  Company Number: PHHY2008BR15026

PATIENT
  Sex: Male
  Weight: 23.6 kg

DRUGS (51)
  1. SANDIMMUNE [Suspect]
     Indication: PROPHYLAXIS AGAINST GRAFT VERSUS HOST DISEASE
     Dosage: 37 MG, Q12H
     Route: 042
     Dates: start: 20080522
  2. CYCLOSPORINE [Suspect]
     Indication: PROPHYLAXIS AGAINST GRAFT VERSUS HOST DISEASE
     Dosage: 45 MG
     Dates: start: 20080604, end: 20080620
  3. SOLU-MEDROL [Concomitant]
     Dosage: 50 MG
     Dates: start: 20080517
  4. IMMUNE GLOBULIN INTRAVENOUS (HUMAN) [Concomitant]
     Dosage: 12 MG
     Dates: start: 20080516
  5. IMMUNE GLOBULIN INTRAVENOUS (HUMAN) [Concomitant]
     Dosage: 11 MG
     Dates: start: 20080612
  6. ANTI-THYMOCYTE GLOBULIN NOS [Concomitant]
     Dosage: 15 MG/DAY
     Dates: start: 20080517
  7. METHOTREXATE [Concomitant]
     Dosage: 12 MG
     Dates: start: 20080524
  8. METHOTREXATE [Concomitant]
     Dosage: 8 MG
  9. ONDANSETRON [Concomitant]
  10. ACYCLOVIR [Concomitant]
  11. FLUCONAZOLE [Concomitant]
  12. URSODIOL [Concomitant]
  13. CEFEPIME [Concomitant]
     Dosage: 1150 MG
     Dates: start: 20080516
  14. TYLENOL [Concomitant]
     Dosage: 24 DROPS
     Dates: start: 20080515
  15. LASIX [Concomitant]
     Dosage: 10 MG
     Dates: start: 20080515
  16. BACTRIM [Concomitant]
     Dosage: 1 VIAL
     Dates: start: 20080515
  17. ZOLBEN [Concomitant]
     Dosage: 400 MG
     Dates: start: 20080515
  18. DIPYRONE [Concomitant]
     Dosage: 1 ML
     Dates: start: 20080515
  19. CYCLOPHOSPHAMIDE [Concomitant]
     Dosage: 1400 MG/DAY
     Dates: start: 20080516
  20. MITEXAN [Concomitant]
     Dosage: 250 MG
     Dates: start: 20080516
  21. ZOFRAN [Concomitant]
     Dosage: 3 MG
     Dates: start: 20080516
  22. ZOFRAN [Concomitant]
     Dosage: 4 MG
  23. ZOFRAN [Concomitant]
     Dosage: 5 MG
  24. URSACOL [Concomitant]
     Dosage: 75 MG
     Dates: start: 20080516
  25. DEXAMETHASONE TAB [Concomitant]
     Dosage: 10 MG
     Dates: start: 20080516
  26. FENERGAN [Concomitant]
     Dosage: 1 VIAL
     Dates: start: 20080517
  27. FENERGAN [Concomitant]
     Dosage: 4 VIAL
  28. STREPTOKINASE [Concomitant]
     Dosage: 15000 IU
     Dates: start: 20080519
  29. CHLORAL HYDRATE [Concomitant]
     Dosage: 6 ML
     Dates: start: 20080520
  30. CHLORAL HYDRATE [Concomitant]
     Dosage: 5 ML
     Dates: start: 20080520
  31. ZOVIRAX [Concomitant]
     Dosage: 400 MG
     Dates: start: 20080522
  32. ZOLTEC [Concomitant]
     Dosage: 75 MG
     Dates: start: 20080522
  33. MANNITOL [Concomitant]
     Dosage: 50 ML
     Dates: start: 20080523
  34. LEUCOVORIN CALCIUM [Concomitant]
     Dosage: 15
     Dates: start: 20080525
  35. LEUCOVORIN CALCIUM [Concomitant]
     Dosage: 10
  36. HYOSCINE [Concomitant]
     Dosage: UNK
     Dates: start: 20080527
  37. MORPHINE [Concomitant]
     Dosage: 10 MG
     Dates: start: 20080527
  38. CAPOTEN [Concomitant]
     Dosage: 6 MG
     Dates: start: 20080529
  39. CAPOTEN [Concomitant]
     Dosage: 25 MG
  40. AMLODIPINE [Concomitant]
     Dosage: 2 MG
     Dates: start: 20080530
  41. AMLODIPINE [Concomitant]
     Dosage: 5 MG
  42. FLAGYL [Concomitant]
     Dosage: 110 MG
     Dates: start: 20080605
  43. DIGESAN [Concomitant]
     Dosage: 3 MG
     Dates: start: 20080606
  44. DIGESAN [Concomitant]
     Dosage: 5 MG
  45. GRANULOKINE [Concomitant]
     Dosage: 150 MG
     Dates: start: 20080607
  46. NBZ [Concomitant]
     Dosage: 3 ML
     Dates: start: 20080607
  47. MEROPENEM [Concomitant]
     Dosage: 450 MG
     Dates: start: 20080608
  48. VORICONAZOLE [Concomitant]
     Dosage: 400 MG
     Dates: start: 20080609
  49. BROMOPRIDE [Concomitant]
     Dosage: 3 ML
     Dates: start: 20080612
  50. BROMOPRIDE [Concomitant]
     Dosage: 5 ML
  51. VANCOMYCIN HCL [Concomitant]
     Dosage: 220 MG
     Dates: start: 20080613

REACTIONS (16)
  - ABDOMINAL PAIN [None]
  - AMAUROSIS [None]
  - CEREBRAL ATROPHY [None]
  - DIARRHOEA [None]
  - HAEMATEMESIS [None]
  - HEADACHE [None]
  - HYPERTENSION [None]
  - IRRITABILITY [None]
  - NAUSEA [None]
  - PROCTALGIA [None]
  - PYREXIA [None]
  - RESPIRATORY SYNCYTIAL VIRUS INFECTION [None]
  - SKIN NODULE [None]
  - SOMNOLENCE [None]
  - VISION BLURRED [None]
  - VOMITING [None]
